FAERS Safety Report 8814652 (Version 1)
Quarter: 2012Q4

REPORT INFORMATION
  Report Type: Spontaneous
  Country: US (occurrence: None)
  Receive Date: 20120926
  Receipt Date: 20120926
  Transmission Date: 20130627
  Serious: Yes (Other)
  Sender: FDA-Public Use
  Company Number: 2012AP002935

PATIENT
  Age: 83 Year
  Sex: Female

DRUGS (13)
  1. OMEPRAZOLE (OMEPRAZOLE) [Suspect]
     Indication: DRUG USE FOR UNKNOWN INDICATION
     Dates: end: 20120812
  2. AMOXICILLIN\ CLAVULANATE POTASSIUM TABLETS (CLAVULANATE POTASSIUM/AMOXICILLIN TRIHYDRATE) [Suspect]
     Indication: URINARY TRACT INFECTION
     Route: 048
     Dates: start: 20120818, end: 20120819
  3. EPILIM [Suspect]
     Indication: TONIC-CLONIC SEIZURES
     Route: 048
     Dates: start: 20120819, end: 20120821
  4. GENTICIN [Suspect]
     Indication: URINARY TRACT INFECTION
     Route: 041
     Dates: start: 20120818, end: 20120818
  5. PHENYTOIN [Suspect]
     Indication: TONIC-CLONIC SEIZURES
     Route: 041
     Dates: start: 20120818, end: 20120818
  6. BUTRANS (BUPRENORPHINE) [Concomitant]
  7. CALCEOS (LEKOVIT CA) [Concomitant]
  8. EBIXA (MEMANTINE HYDROCHLORIDE) [Concomitant]
  9. MOVICOL [Concomitant]
  10. PARACETAMOL [Concomitant]
  11. PROTELOS (STRONTIUM RANELATE) [Concomitant]
  12. SENNA (SENNA ALEXANDRINA) [Concomitant]
  13. TRIMETHOPRIM (TRIMETHOPRIM) [Concomitant]

REACTIONS (1)
  - Blood creatine phosphokinase increased [None]
